FAERS Safety Report 23171848 (Version 1)
Quarter: 2023Q4

REPORT INFORMATION
  Report Type: Spontaneous
  Country: FR (occurrence: FR)
  Receive Date: 20231110
  Receipt Date: 20231110
  Transmission Date: 20240110
  Serious: Yes (Hospitalization)
  Sender: FDA-Public Use
  Company Number: None

PATIENT
  Age: 94 Year
  Sex: Male

DRUGS (7)
  1. ACETAMINOPHEN [Suspect]
     Active Substance: ACETAMINOPHEN
     Indication: Product used for unknown indication
     Dosage: 1 DOSAGE FORM, 500/30
     Route: 048
     Dates: start: 20230928, end: 20230928
  2. FUROSEMIDE [Suspect]
     Active Substance: FUROSEMIDE
     Indication: Product used for unknown indication
     Dosage: 1 DOSAGE FORM
     Route: 048
     Dates: start: 20230928
  3. CYAMEMAZINE [Suspect]
     Active Substance: CYAMEMAZINE
     Indication: Product used for unknown indication
     Dosage: 50 MILLIGRAM
     Route: 048
     Dates: start: 20230928, end: 20230928
  4. DAFALGAN [Suspect]
     Active Substance: ACETAMINOPHEN
     Indication: Product used for unknown indication
     Dosage: 1 DOSAGE FORM
     Route: 048
     Dates: start: 20230928
  5. LORAZEPAM [Suspect]
     Active Substance: LORAZEPAM
     Indication: Product used for unknown indication
     Dosage: 2 DOSAGE FORM
     Route: 048
     Dates: start: 20230928, end: 20230928
  6. CODEINE [Suspect]
     Active Substance: CODEINE
     Indication: Product used for unknown indication
     Dosage: 1 DOSAGE FORM, 500/30
     Route: 048
     Dates: start: 20230928, end: 20230928
  7. POTASSIUM CHLORIDE [Suspect]
     Active Substance: POTASSIUM CHLORIDE
     Indication: Product used for unknown indication
     Dosage: 1 DOSAGE FORM
     Route: 048
     Dates: start: 20230928

REACTIONS (3)
  - Somnolence [Recovered/Resolved]
  - Coma [Recovered/Resolved]
  - Product administration error [Recovered/Resolved]

NARRATIVE: CASE EVENT DATE: 20230928
